FAERS Safety Report 17478754 (Version 2)
Quarter: 2020Q1

REPORT INFORMATION
  Report Type: Report from Study
  Country: US (occurrence: US)
  Receive Date: 20200228
  Receipt Date: 20200311
  Transmission Date: 20200409
  Serious: Yes (Other)
  Sender: FDA-Public Use
  Company Number: NVSC2020US054389

PATIENT
  Age: 65 Year
  Sex: Male

DRUGS (4)
  1. COREG [Concomitant]
     Active Substance: CARVEDILOL
     Indication: PRODUCT USED FOR UNKNOWN INDICATION
     Dosage: UNK (1 TABLET EVERY AM AND 1/2 TABLET EVERY PM-DAILY)
     Route: 065
  2. ENTRESTO [Suspect]
     Active Substance: SACUBITRIL\VALSARTAN
     Indication: CARDIAC FAILURE CHRONIC
     Dosage: 50 MG, QD (24 MG SACUBITRIL /26 MG VALSARTAN) - 50MG
     Route: 048
     Dates: start: 201902
  3. COREG [Concomitant]
     Active Substance: CARVEDILOL
     Dosage: UNK,(1/2 TABLET AM/PM-DAILY)
     Route: 065
  4. ENTRESTO [Suspect]
     Active Substance: SACUBITRIL\VALSARTAN
     Dosage: 100 MG, QD (49 MG SACUBITRIL AND 51 MG VALSARTAN)- 100MG
     Route: 048

REACTIONS (3)
  - Blood pressure systolic decreased [Unknown]
  - Fall [Recovering/Resolving]
  - Lower limb fracture [Recovering/Resolving]

NARRATIVE: CASE EVENT DATE: 201907
